FAERS Safety Report 9345871 (Version 1)
Quarter: 2013Q2

REPORT INFORMATION
  Report Type: Spontaneous
  Country: AT (occurrence: AT)
  Receive Date: 20130613
  Receipt Date: 20130613
  Transmission Date: 20140414
  Serious: Yes (Hospitalization)
  Sender: FDA-Public Use
  Company Number: AT-PFIZER INC-2013175967

PATIENT
  Age: 36 Year
  Sex: Female
  Weight: 46 kg

DRUGS (9)
  1. EFECTIN ER [Suspect]
     Dosage: 75 MG, UNK
     Dates: start: 20130516, end: 20130518
  2. EFECTIN ER [Suspect]
     Dosage: 150 MG, UNK
     Dates: start: 20130519, end: 20130521
  3. EFECTIN ER [Suspect]
     Dosage: 300 MG, UNK
     Dates: start: 20130522, end: 20130525
  4. ZOLDEM [Concomitant]
     Dosage: 10 MG, UNK
  5. SERTRALINE [Concomitant]
     Dosage: 50 MG, UNK
     Dates: start: 20130507, end: 20130515
  6. SOLIAN [Concomitant]
     Dosage: 150 MG, UNK
     Dates: start: 20130510
  7. TRITTICO [Concomitant]
     Dosage: 125 MG, UNK
     Dates: start: 20130525
  8. PANTOLOC [Concomitant]
     Dosage: 40 MG, UNK
  9. KALIORAL [Concomitant]
     Dosage: 2 DF, UNK
     Dates: start: 20130515

REACTIONS (1)
  - Impulse-control disorder [Recovered/Resolved]
